FAERS Safety Report 9279175 (Version 2)
Quarter: 2013Q2

REPORT INFORMATION
  Report Type: Spontaneous
  Country: BR (occurrence: BR)
  Receive Date: 20130508
  Receipt Date: 20130514
  Transmission Date: 20140414
  Serious: Yes (Hospitalization)
  Sender: FDA-Public Use
  Company Number: BR-ABBOTT-13X-020-1083983-00

PATIENT
  Sex: Female
  Weight: 65 kg

DRUGS (7)
  1. DEPAKOTE ER [Suspect]
     Indication: BIPOLAR DISORDER
     Route: 048
     Dates: start: 2011
  2. UNKNOWN MEDICATION [Suspect]
     Indication: PRODUCT USED FOR UNKNOWN INDICATION
  3. ALPRAZOLAM [Concomitant]
     Indication: SLEEP DISORDER THERAPY
     Route: 048
     Dates: start: 201210
  4. ALPRAZOLAM [Concomitant]
     Indication: BIPOLAR DISORDER
  5. SERTRALINE [Concomitant]
     Indication: DEPRESSION
     Route: 048
     Dates: start: 2011
  6. SERTRALINE [Concomitant]
     Indication: BIPOLAR DISORDER
  7. VITAMIN B1/VITAMIN B6/KERATIN/AMINOS/CALCIUM/YEAST/CYSTINE/BIOTIN [Concomitant]
     Indication: ALOPECIA
     Dosage: PANTOGAR MODIFICADO: 80MG/80MG/20MG/20MG/100MG/100MG/20MG/0.5MG
     Route: 048
     Dates: start: 201210

REACTIONS (4)
  - Pain in extremity [Recovered/Resolved]
  - Musculoskeletal pain [Not Recovered/Not Resolved]
  - Disorientation [Recovered/Resolved]
  - Feeling abnormal [Recovered/Resolved]
